FAERS Safety Report 8030117-4 (Version None)
Quarter: 2011Q4

REPORT INFORMATION
  Report Type: 
  Country: None (occurrence: None)
  Receive Date: 20111130
  Receipt Date: 20110808
  Transmission Date: 20120403
  Serious: Yes (Other)
  Sender: FDA-Public Use
  Company Number: US201002002853

PATIENT
  Age: 49 Year
  Sex: Female

DRUGS (10)
  1. ANTACID (CALCIUM CARBONATE, GLYCINE) [Concomitant]
  2. CYMBALTA [Concomitant]
  3. BYETTA [Suspect]
     Dates: start: 20061001, end: 20080101
  4. NORCO [Concomitant]
  5. TYLENOL /00020001/(PARACETAMOL) [Concomitant]
  6. DURAGESIC-100 [Concomitant]
  7. DURAGESIC-100 [Concomitant]
  8. NEXIUM [Concomitant]
  9. ACTOS [Concomitant]
  10. LISINOPRIL [Concomitant]

REACTIONS (3)
  - BLOOD GLUCOSE INCREASED [None]
  - RENAL FAILURE [None]
  - LIGAMENT SPRAIN [None]
